FAERS Safety Report 21937834 (Version 1)
Quarter: 2023Q1

REPORT INFORMATION
  Report Type: Spontaneous
  Country: US (occurrence: None)
  Receive Date: 20230201
  Receipt Date: 20230201
  Transmission Date: 20230418
  Serious: No
  Sender: FDA-Public Use
  Company Number: None

PATIENT
  Age: 83 Year
  Sex: Female
  Weight: 55.8 kg

DRUGS (11)
  1. MOLNUPIRAVIR [Suspect]
     Active Substance: MOLNUPIRAVIR
     Indication: COVID-19 treatment
     Dosage: FREQUENCY : EVERY 12 HOURS;?
     Route: 048
  2. PREDNISONE [Concomitant]
     Active Substance: PREDNISONE
  3. BENZONATATE [Concomitant]
     Active Substance: BENZONATATE
  4. METOPROLOL [Concomitant]
     Active Substance: METOPROLOL
  5. TIKOSYN [Concomitant]
     Active Substance: DOFETILIDE
  6. FUROSEMIDE [Concomitant]
     Active Substance: FUROSEMIDE
  7. ISOSORBIDE [Concomitant]
     Active Substance: ISOSORBIDE
  8. mononitrate [Concomitant]
  9. ZETIA [Concomitant]
     Active Substance: EZETIMIBE
  10. WARFARIN [Concomitant]
     Active Substance: WARFARIN
  11. ASPIRIN [Concomitant]
     Active Substance: ASPIRIN

REACTIONS (5)
  - Palpitations [None]
  - Atrial fibrillation [None]
  - Oropharyngeal pain [None]
  - Aphonia [None]
  - Therapy cessation [None]

NARRATIVE: CASE EVENT DATE: 20230117
